FAERS Safety Report 10319847 (Version 2)
Quarter: 2014Q4

REPORT INFORMATION
  Report Type: Other
  Country: US (occurrence: US)
  Receive Date: 20140719
  Receipt Date: 20141222
  Transmission Date: 20150528
  Serious: Yes (Hospitalization, Other)
  Sender: FDA-Public Use
  Company Number: US-GSKPPD-2014GSK011924

PATIENT
  Age: 57 Year
  Sex: Male

DRUGS (6)
  1. ASPIRIN. [Concomitant]
     Active Substance: ASPIRIN
     Route: 048
  2. PLAVIX [Concomitant]
     Active Substance: CLOPIDOGREL BISULFATE
  3. AVANDIA [Suspect]
     Active Substance: ROSIGLITAZONE MALEATE
     Indication: DIABETES MELLITUS
     Route: 048
     Dates: end: 20091202
  4. ENALAPRIL [Concomitant]
     Active Substance: ENALAPRIL
     Route: 048
  5. NITROSTAT [Concomitant]
     Active Substance: NITROGLYCERIN
  6. METOPROLOL [Concomitant]
     Active Substance: METOPROLOL
     Route: 048

REACTIONS (2)
  - Acute myocardial infarction [Recovered/Resolved]
  - Cardiac failure congestive [Recovered/Resolved]

NARRATIVE: CASE EVENT DATE: 20091127
